FAERS Safety Report 8388526-X (Version None)
Quarter: 2012Q2

REPORT INFORMATION
  Report Type: 
  Country: None (occurrence: None)
  Receive Date: 20120525
  Receipt Date: 20120521
  Transmission Date: 20120825
  Serious: Yes (Life-Threatening)
  Sender: FDA-Public Use
  Company Number: FR-ASTRAZENECA-2012SE32385

PATIENT
  Age: 14340 Day
  Sex: Male

DRUGS (2)
  1. QUETIAPINE FUMARATE [Suspect]
     Route: 048
     Dates: start: 20120325, end: 20120404
  2. METHADONE HCL [Suspect]
     Route: 048
     Dates: start: 20010101

REACTIONS (2)
  - ELECTROCARDIOGRAM QT PROLONGED [None]
  - BRADYCARDIA [None]
